FAERS Safety Report 8296901-7 (Version None)
Quarter: 2012Q2

REPORT INFORMATION
  Report Type: 
  Country: None (occurrence: None)
  Receive Date: 20120419
  Receipt Date: 20120411
  Transmission Date: 20120825
  Serious: Yes (Hospitalization)
  Sender: FDA-Public Use
  Company Number: US-BIOGENIDEC-2012BI012623

PATIENT
  Age: 63 Year
  Sex: Female

DRUGS (2)
  1. MEDICATIONS NOS [Concomitant]
     Indication: DEPRESSION
  2. AVONEX [Suspect]
     Indication: MULTIPLE SCLEROSIS
     Route: 030
     Dates: start: 20111028

REACTIONS (6)
  - AGITATION [None]
  - INSOMNIA [None]
  - FALL [None]
  - NASOPHARYNGITIS [None]
  - ANXIETY [None]
  - RIB FRACTURE [None]
